FAERS Safety Report 7781255-2 (Version None)
Quarter: 2011Q3

REPORT INFORMATION
  Report Type: 
  Country: None (occurrence: None)
  Receive Date: 20110927
  Receipt Date: 20110912
  Transmission Date: 20111222
  Serious: Yes (Hospitalization)
  Sender: FDA-Public Use
  Company Number: RS-WATSON-2011-15280

PATIENT
  Age: 31 Year
  Sex: Female

DRUGS (2)
  1. ETHANOL [Suspect]
     Indication: PRODUCT USED FOR UNKNOWN INDICATION
  2. PROPRANOLOL [Suspect]
     Dosage: 3.6 G, SINGLE

REACTIONS (8)
  - CONVULSION [None]
  - HYPOGLYCAEMIA [None]
  - COMA [None]
  - ARRHYTHMIA [None]
  - RESPIRATORY FAILURE [None]
  - TACHYCARDIA [None]
  - SHOCK [None]
  - OVERDOSE [None]
